FAERS Safety Report 9592838 (Version 1)
Quarter: 2013Q4

REPORT INFORMATION
  Report Type: Spontaneous
  Country: GB (occurrence: None)
  Receive Date: 20131002
  Receipt Date: 20131002
  Transmission Date: 20140711
  Serious: Yes (Death)
  Sender: FDA-Public Use
  Company Number: FK201304337

PATIENT
  Age: 67 Year
  Sex: Male

DRUGS (21)
  1. OXALIPLATIN (MANUFACTURER UNKNOWN) (OXALIPLATIN) (OXALIPLATIN) [Suspect]
     Indication: COLON CANCER
     Dosage: 165 MG, 1 IN 2 WK, IV
     Route: 042
     Dates: start: 20130702
  2. FLUOROURACIL (FLUOROURACIL) (FLUOROURACIL) [Suspect]
     Indication: COLON CANCER
     Dosage: 1 IN 2 WK, IV
     Route: 042
     Dates: start: 20130212, end: 20130702
  3. ALUMINIUM (ALUMINIUM AGENTS) [Concomitant]
  4. BEVACIZUMAB (BEVACIZUMAB) [Concomitant]
  5. BIOTENE DRY MOUTH (GLUCOSE OXIDASE) [Concomitant]
  6. CALCIUM FOLINATE (CALCIUM FOLINATE) [Concomitant]
  7. CHLORHEXIDINE (CHLORHEXIDINE) [Concomitant]
  8. COLECALCIFEROL (COLECALCIFEROL) [Concomitant]
  9. COLOXYL (DOCUSATE SODIUM) [Concomitant]
  10. DEXAMETHASONE (DEXAMETHASONE) [Concomitant]
  11. DUROGESIC DTRANS (FENTANYL) [Concomitant]
  12. ESOMEPRAZOLE MAGNESIUM (ESOMEPRAZOLE MAGNESIUM) [Concomitant]
  13. FLUCONAZOLE (FLUCONAZOLE) [Concomitant]
  14. MAGNESIUM HYDROXIDE (MAGNESIUM HYDROXIDE) [Concomitant]
  15. NYSTATIN (NYSTATIN) [Concomitant]
  16. OXYCODONE HYDROCHLORIDE (OXYCODONE HYDROCHLORIDE) [Concomitant]
  17. OXYXONTIN (OXYCODONE HYDROCHLORIDE) [Concomitant]
  18. PARACETAMOL (PARACETAMOL) [Concomitant]
  19. SIMETICONE (DIMETICONE, ACTIVATED) [Concomitant]
  20. SPIRIVA (TIOTROPIUM BROMIDE) [Concomitant]
  21. SYMBICORT (BUDESONIDE W/ FORMOTEROL FUMARATE) [Concomitant]

REACTIONS (7)
  - Mucosal inflammation [None]
  - Asthenia [None]
  - Pneumonia [None]
  - Mouth ulceration [None]
  - Haemoptysis [None]
  - Pneumococcal sepsis [None]
  - Emphysema [None]
